FAERS Safety Report 6958212-9 (Version None)
Quarter: 2010Q3

REPORT INFORMATION
  Report Type: 
  Country: None (occurrence: None)
  Receive Date: 20100830
  Receipt Date: 20100830
  Transmission Date: 20110219
  Serious: No
  Sender: FDA-Public Use
  Company Number: None

PATIENT
  Age: 66 Year
  Sex: Male

DRUGS (1)
  1. ERBITUX [Suspect]
     Indication: LARYNGEAL CANCER
     Dosage: 100 MG X 2
     Dates: start: 20100823

REACTIONS (4)
  - CHILLS [None]
  - DIZZINESS [None]
  - ERYTHEMA [None]
  - TREMOR [None]
